FAERS Safety Report 13294701 (Version 1)
Quarter: 2017Q1

REPORT INFORMATION
  Report Type: Spontaneous
  Country: US (occurrence: US)
  Receive Date: 20170303
  Receipt Date: 20170303
  Transmission Date: 20170428
  Serious: No
  Sender: FDA-Public Use
  Company Number: US-BRISTOL-MYERS SQUIBB COMPANY-BMS-2017-016929

PATIENT
  Sex: Male
  Weight: 71.66 kg

DRUGS (1)
  1. OPDIVO [Suspect]
     Active Substance: NIVOLUMAB
     Indication: NON-SMALL CELL LUNG CANCER
     Dosage: UNK
     Route: 065
     Dates: end: 20161108

REACTIONS (11)
  - Somnolence [Unknown]
  - Dizziness [Unknown]
  - Asthenia [Unknown]
  - Dyspnoea [Unknown]
  - Constipation [Unknown]
  - Pruritus [Unknown]
  - Chest discomfort [Unknown]
  - Hair texture abnormal [Unknown]
  - Chills [Unknown]
  - Dry skin [Unknown]
  - Dysphonia [Unknown]
